FAERS Safety Report 5773243-2 (Version None)
Quarter: 2008Q2

REPORT INFORMATION
  Report Type: 
  Country: None (occurrence: None)
  Receive Date: 20080613
  Receipt Date: 20080613
  Transmission Date: 20081010
  Serious: Yes (Disabling)
  Sender: FDA-Public Use
  Company Number: None

PATIENT
  Age: 70 Year
  Sex: Male
  Weight: 105.3 kg

DRUGS (2)
  1. LOVENOX [Suspect]
     Indication: ATRIAL FIBRILLATION
     Dosage: 100 MCG EVERY 12 HOURS SQ
     Route: 058
     Dates: start: 20080107, end: 20080110
  2. LOVENOX [Suspect]
     Indication: PULMONARY EMBOLISM
     Dosage: 100 MCG EVERY 12 HOURS SQ
     Route: 058
     Dates: start: 20080107, end: 20080110

REACTIONS (1)
  - HEPARIN-INDUCED THROMBOCYTOPENIA [None]
